FAERS Safety Report 7951867-1 (Version None)
Quarter: 2011Q4

REPORT INFORMATION
  Report Type: 
  Country: None (occurrence: None)
  Receive Date: 20111201
  Receipt Date: 20111201
  Transmission Date: 20120403
  Serious: Yes (Death, Life-Threatening, Hospitalization, Disabling, Congenital Anomaly, Other)
  Sender: FDA-Public Use
  Company Number: None

PATIENT
  Age: 21 Year
  Sex: Male
  Weight: 82.553 kg

DRUGS (1)
  1. AMPHETAMINE SALT COMBINATION [Suspect]
     Indication: ATTENTION DEFICIT/HYPERACTIVITY DISORDER
     Dosage: 20MG
     Route: 048
     Dates: start: 20110916, end: 20111130

REACTIONS (4)
  - APHTHOUS STOMATITIS [None]
  - MOUTH ULCERATION [None]
  - ORAL PAIN [None]
  - TONGUE ULCERATION [None]
